FAERS Safety Report 8887649 (Version 1)
Quarter: 2012Q4

REPORT INFORMATION
  Report Type: Spontaneous
  Country: FR (occurrence: None)
  Receive Date: 20121031
  Receipt Date: 20121031
  Transmission Date: 20130627
  Serious: Yes (Hospitalization)
  Sender: FDA-Public Use
  Company Number: 1457968

PATIENT
  Age: 73 Year
  Sex: Female

DRUGS (33)
  1. IRINOTECAN HYDROCHLORIDE [Suspect]
     Dosage: 290 MG MILLIGRAM(S), INTRAVENOUS
     Route: 042
     Dates: start: 20120710
  2. IRINOTECAN HYDROCHLORIDE [Suspect]
     Dosage: 290
     Route: 042
     Dates: start: 20120724
  3. IRINOTECAN HYDROCHLORIDE [Suspect]
     Route: 042
     Dates: start: 20120807
  4. IRINOTECAN HYDROCHLORIDE [Suspect]
     Route: 042
     Dates: start: 20120907
  5. FLUOROURACIL [Suspect]
     Route: 042
     Dates: start: 20120214
  6. FLUOROURACIL [Suspect]
     Route: 042
     Dates: start: 20120228
  7. FLUOROURACIL [Suspect]
     Route: 042
     Dates: start: 20120313
  8. FLUOROURACIL [Suspect]
     Route: 042
     Dates: start: 20120326, end: 20120327
  9. FLUOROURACIL [Suspect]
     Route: 042
     Dates: start: 20120410, end: 20120411
  10. FLUOROURACIL [Suspect]
     Route: 042
     Dates: start: 20120424
  11. FLUOROURACIL [Suspect]
     Route: 042
     Dates: start: 20120510
  12. FLUOROURACIL [Suspect]
     Route: 042
     Dates: start: 20120523
  13. FLUOROURACIL [Suspect]
     Route: 042
     Dates: start: 20120511
  14. FLUOROURACIL [Suspect]
     Route: 042
     Dates: start: 20120525
  15. FLUOROURACIL [Suspect]
     Route: 042
     Dates: start: 20120711
  16. FLUOROURACIL [Suspect]
     Route: 042
     Dates: start: 20120724
  17. FLUOROURACIL [Suspect]
     Route: 042
     Dates: start: 20120807
  18. FLUOROURACIL [Suspect]
     Route: 042
     Dates: start: 20120907
  19. AVASTIN [Suspect]
     Route: 042
     Dates: start: 20120214
  20. AVASTIN [Suspect]
     Route: 042
     Dates: start: 20120710
  21. AVASTIN [Suspect]
     Route: 042
     Dates: start: 20120724
  22. AVASTIN [Suspect]
     Route: 042
     Dates: start: 20120807
  23. AVASTIN [Suspect]
     Route: 042
     Dates: start: 20120907
  24. ELOXATIN [Suspect]
     Route: 042
     Dates: start: 20120214
  25. ELOXATIN [Suspect]
     Route: 042
     Dates: start: 20120228
  26. ELOXATIN [Suspect]
     Route: 042
     Dates: start: 20120313
  27. METHYLPREDNISOLONE [Concomitant]
  28. ZOPHREN [Concomitant]
  29. CALCIUM FOLINATE [Concomitant]
  30. ATROPINE [Concomitant]
  31. SKENAN [Concomitant]
  32. IXPRIM [Concomitant]
  33. ATHYMIL [Concomitant]

REACTIONS (6)
  - Disorientation [None]
  - Encephalopathy [None]
  - Angiopathy [None]
  - Somnolence [None]
  - Incoherent [None]
  - Speech disorder [None]
